FAERS Safety Report 19760214 (Version 1)
Quarter: 2021Q3

REPORT INFORMATION
  Report Type: Spontaneous
  Country: US (occurrence: US)
  Receive Date: 20210830
  Receipt Date: 20210830
  Transmission Date: 20211014
  Serious: No
  Sender: FDA-Public Use
  Company Number: US-TEVA-2021-US-1945817

PATIENT

DRUGS (1)
  1. TRIAMTERENE/HYDROCHLOROTHIAZIDE TEVA [Suspect]
     Active Substance: HYDROCHLOROTHIAZIDE\TRIAMTERENE
     Dosage: STRENGTH: 37.5 MG / 25 MG
     Route: 065

REACTIONS (2)
  - Product quality issue [Unknown]
  - Peripheral swelling [Unknown]
